FAERS Safety Report 6315590-1 (Version None)
Quarter: 2009Q3

REPORT INFORMATION
  Report Type: 
  Country: None (occurrence: None)
  Receive Date: 20090818
  Receipt Date: 20090805
  Transmission Date: 20100115
  Serious: Yes (Other)
  Sender: FDA-Public Use
  Company Number: SPV1-2009-01616

PATIENT
  Age: 61 Year
  Sex: Female

DRUGS (3)
  1. CARBATROL [Suspect]
     Indication: DRUG USE FOR UNKNOWN INDICATION
     Dates: end: 20090601
  2. BETASERON [Suspect]
     Indication: RELAPSING-REMITTING MULTIPLE SCLEROSIS
     Dosage: 8 MIU, EVERY OTHER DAY, SUBCUTANEOUS
     Route: 058
     Dates: start: 19940104
  3. EFFEXOR /01233801/ (VENLAFAXINE) [Concomitant]

REACTIONS (5)
  - GENERALISED OEDEMA [None]
  - MOBILITY DECREASED [None]
  - PAIN OF SKIN [None]
  - RASH [None]
  - SKIN EXFOLIATION [None]
